FAERS Safety Report 23839231 (Version 2)
Quarter: 2024Q2

REPORT INFORMATION
  Report Type: Report from Study
  Country: DE (occurrence: DE)
  Receive Date: 20240509
  Receipt Date: 20240511
  Transmission Date: 20240716
  Serious: Yes (Hospitalization)
  Sender: FDA-Public Use
  Company Number: DE-ABBVIE-5747809

PATIENT
  Sex: Male

DRUGS (3)
  1. CARBIDOPA\LEVODOPA [Suspect]
     Active Substance: CARBIDOPA\LEVODOPA
     Indication: Parkinson^s disease
     Dosage: MD 6.0 ML; CRD 4.2 ML/H; CRN 4.2 ML/H; ED 2.0 ML, DOSE REDUCED
     Route: 050
  2. CARBIDOPA\LEVODOPA [Suspect]
     Active Substance: CARBIDOPA\LEVODOPA
     Dosage: MD 6.0 ML; CRD 4.8 ML/H; CRN 4.2 ML/H; ED 2.0 ML
     Route: 050
  3. CARBIDOPA\LEVODOPA [Suspect]
     Active Substance: CARBIDOPA\LEVODOPA
     Dosage: MD 6.0 ML; CRD 6.3 ML/H; CRN 4.2 ML/H; ED 2.0 ML
     Route: 050
     Dates: start: 20210621

REACTIONS (4)
  - Grimacing [Recovering/Resolving]
  - Cardiovascular disorder [Unknown]
  - Overdose [Unknown]
  - Gait inability [Unknown]
